FAERS Safety Report 8986120 (Version 1)
Quarter: 2012Q4

REPORT INFORMATION
  Report Type: Spontaneous
  Country: US (occurrence: None)
  Receive Date: 20121217
  Receipt Date: 20121217
  Transmission Date: 20130627
  Serious: Yes (Hospitalization)
  Sender: FDA-Public Use
  Company Number: 2012-01776

PATIENT
  Age: 33 Year
  Sex: Female
  Weight: 60 kg

DRUGS (17)
  1. CEPHALEXIN [Suspect]
     Indication: IMPETIGO
     Route: 048
     Dates: start: 20121103, end: 20121108
  2. ACYCLOVIR [Suspect]
     Indication: COLD SORE (HERPETIC)
     Route: 048
     Dates: start: 20121103, end: 20121108
  3. CLOTRIMAZOLE+CLOTRIMAZOLE MICRONIZED (CANESTEN) [Concomitant]
  4. FENTANYL (DUROGESIC DTRANS) [Concomitant]
  5. ESOMEPRAZOLE [Concomitant]
  6. HYOSCINE BUTYLBROMIDE+ HYOSCIN N-BUTYLBROMIDE (BUSCOPAN) [Concomitant]
  7. CALCIUM CARBONATE+ COLECALCIFEROL (CALCEOS) [Concomitant]
  8. ETANERCEPT [Concomitant]
  9. INDOMETHACIN (INDOMETACIN) [Concomitant]
  10. DEXAMETHASONE+NEOMYCIN SULPHATE+ POLYMYXIN B SULPHATE (MAXITROL) [Concomitant]
  11. PANCREATIN (NUTRIZYM) [Concomitant]
  12. PROCHLORPERAZINE (PROCHLORPERAZINE MALEATE) [Concomitant]
  13. BUDESONIDE + BUDESONIDE MICRONISED (PULMICORT) [Concomitant]
  14. SUCRALFATE [Concomitant]
  15. GUARAPROLOSE (SYSTANE) [Concomitant]
  16. CODEINE PHOSPHATE+PARACETAMOL (TYLEX) [Concomitant]
  17. SALBUTAMOL+SALBUTAMOL BASE+SALBUTAMOL SULPHATE+SALBUTAMOL SULPHATE MICRONISED (VENTOLIN) [Concomitant]

REACTIONS (1)
  - Pancreatitis [None]
